FAERS Safety Report 16773728 (Version 1)
Quarter: 2019Q3

REPORT INFORMATION
  Report Type: Report from Study
  Country: CA (occurrence: CA)
  Receive Date: 20190904
  Receipt Date: 20190904
  Transmission Date: 20191005
  Serious: Yes (Hospitalization, Other)
  Sender: FDA-Public Use
  Company Number: PHHY2019CA168662

PATIENT
  Age: 60 Year
  Sex: Female

DRUGS (2)
  1. ERELZI [Suspect]
     Active Substance: ETANERCEPT-SZZS
     Indication: ANKYLOSING SPONDYLITIS
     Dosage: 50 MG, QW
     Route: 058
     Dates: start: 20190711
  2. ERELZI [Suspect]
     Active Substance: ETANERCEPT-SZZS
     Dosage: 50 MG, QW
     Route: 058
     Dates: start: 20190725

REACTIONS (10)
  - Headache [Unknown]
  - Ankylosing spondylitis [Recovering/Resolving]
  - Somnolence [Unknown]
  - Vaginal discharge [Unknown]
  - Skin discolouration [Unknown]
  - Injection site pain [Unknown]
  - Infection [Unknown]
  - Inflammation [Unknown]
  - Mass [Unknown]
  - Fatigue [Recovering/Resolving]

NARRATIVE: CASE EVENT DATE: 20190711
